FAERS Safety Report 5961332-9 (Version None)
Quarter: 2008Q4

REPORT INFORMATION
  Report Type: 
  Country: None (occurrence: None)
  Receive Date: 20081121
  Receipt Date: 20081112
  Transmission Date: 20090506
  Serious: Yes (Other)
  Sender: FDA-Public Use
  Company Number: CA-ABBOTT-08P-028-0487388-00

PATIENT
  Sex: Female

DRUGS (2)
  1. HUMIRA [Suspect]
     Indication: GRANULOMA
     Route: 058
     Dates: start: 20071222
  2. HUMIRA [Suspect]
     Indication: CROHN'S DISEASE

REACTIONS (8)
  - ABDOMINAL PAIN [None]
  - ARTHRALGIA [None]
  - BLOOD IRON DECREASED [None]
  - CHEST DISCOMFORT [None]
  - EYE IRRITATION [None]
  - FATIGUE [None]
  - OROPHARYNGEAL PAIN [None]
  - RASH [None]
